FAERS Safety Report 9819194 (Version 1)
Quarter: 2014Q1

REPORT INFORMATION
  Report Type: Spontaneous
  Country: CN (occurrence: None)
  Receive Date: 20140113
  Receipt Date: 20140113
  Transmission Date: 20141002
  Serious: Yes (Other)
  Sender: FDA-Public Use
  Company Number: CN-JNJFOC-20140101561

PATIENT
  Age: 43 Year
  Sex: 0

DRUGS (1)
  1. DECITABINE [Suspect]
     Indication: ACUTE MYELOID LEUKAEMIA RECURRENT
     Dosage: IN 1 DAY
     Route: 042

REACTIONS (5)
  - Haematotoxicity [None]
  - Acute myeloid leukaemia [None]
  - Stem cell transplant [None]
  - No therapeutic response [None]
  - Pneumonia [None]
